FAERS Safety Report 6122347-3 (Version None)
Quarter: 2009Q1

REPORT INFORMATION
  Report Type: 
  Country: None (occurrence: None)
  Receive Date: 20090318
  Receipt Date: 20090309
  Transmission Date: 20090719
  Serious: Yes (Life-Threatening)
  Sender: FDA-Public Use
  Company Number: FR-ASTRAZENECA-2008CG01487

PATIENT
  Age: 3912 Day
  Sex: Female

DRUGS (5)
  1. DIPRIVAN [Suspect]
     Indication: GENERAL ANAESTHESIA
     Route: 042
     Dates: start: 20080916
  2. SEVORANE [Suspect]
     Indication: GENERAL ANAESTHESIA
     Route: 055
     Dates: start: 20080916, end: 20080916
  3. SUFENTANIL [Suspect]
     Indication: GENERAL ANAESTHESIA
     Dates: start: 20080916
  4. VANCOMYCIN [Suspect]
     Route: 042
     Dates: start: 20080916
  5. PERFALGAN [Concomitant]
     Route: 042
     Dates: start: 20080916

REACTIONS (1)
  - SHOCK [None]
